FAERS Safety Report 4909889-0 (Version None)
Quarter: 2006Q1

REPORT INFORMATION
  Report Type: 
  Country: None (occurrence: None)
  Receive Date: 20060213
  Receipt Date: 20060201
  Transmission Date: 20060701
  Serious: Yes (Hospitalization, Other)
  Sender: FDA-Public Use
  Company Number: PHBS2006NL01756

PATIENT
  Sex: Female

DRUGS (6)
  1. CYCLOSPORINE [Suspect]
     Indication: RENAL TRANSPLANT
     Dosage: 200 MG/DAY
     Route: 065
     Dates: start: 19961001
  2. MYCOPHENOLATE MOFETIL [Suspect]
     Indication: RENAL TRANSPLANT
     Dosage: 2 G/DAY
     Route: 065
     Dates: start: 19961001
  3. PREDNISOLONE [Concomitant]
     Dosage: 10 MG/DAY
     Route: 065
     Dates: start: 19961001
  4. METHYLPREDNISOLONE [Concomitant]
     Indication: TRANSPLANT REJECTION
     Dosage: 1 G/DAY
     Route: 042
  5. ANTILYMPHOCYTE IMMUNOGLOBULIN ^MERIEUX^ [Concomitant]
     Indication: TRANSPLANT REJECTION
     Dosage: 4 MG/KG ON ALTERNATE DAYS (5 DOSES)
     Route: 042
  6. PLASMAPHERESIS [Concomitant]

REACTIONS (11)
  - ATELECTASIS [None]
  - BLOOD IMMUNOGLOBULIN G DECREASED [None]
  - BRONCHIECTASIS [None]
  - COUGH [None]
  - DYSPNOEA [None]
  - ENTERAL NUTRITION [None]
  - HAEMOPHILUS INFECTION [None]
  - PSEUDOMONAS INFECTION [None]
  - TRANSPLANT REJECTION [None]
  - UPPER RESPIRATORY TRACT INFECTION [None]
  - WEIGHT DECREASED [None]
